FAERS Safety Report 19144449 (Version 1)
Quarter: 2021Q2

REPORT INFORMATION
  Report Type: Spontaneous
  Country: JP (occurrence: JP)
  Receive Date: 20210416
  Receipt Date: 20210416
  Transmission Date: 20210717
  Serious: Yes (Death)
  Sender: FDA-Public Use
  Company Number: JP-AMGEN-JPNSP2021057654

PATIENT
  Age: 58 Year
  Sex: Female
  Weight: 42 kg

DRUGS (3)
  1. RANMARK [Suspect]
     Active Substance: DENOSUMAB
     Indication: METASTASES TO PELVIS
     Dosage: UNK
     Route: 065
  2. LENVATINIB [Suspect]
     Active Substance: LENVATINIB
     Indication: THYROID CANCER
     Dosage: 14 MG
     Route: 065
  3. LENVATINIB [Suspect]
     Active Substance: LENVATINIB
     Dosage: 10 MG
     Route: 065

REACTIONS (5)
  - Pleural effusion [Unknown]
  - Hypertension [Unknown]
  - Leukocytosis [Unknown]
  - Decreased appetite [Unknown]
  - Death [Fatal]
